FAERS Safety Report 20774125 (Version 7)
Quarter: 2023Q1

REPORT INFORMATION
  Report Type: Report from Study
  Country: US (occurrence: None)
  Receive Date: 20220502
  Receipt Date: 20230203
  Transmission Date: 20230418
  Serious: Yes (Other)
  Sender: FDA-Public Use
  Company Number: US-Merck Healthcare KGaA-9316263

PATIENT
  Age: 71 Year
  Sex: Female

DRUGS (6)
  1. MAVENCLAD [Suspect]
     Active Substance: CLADRIBINE
     Indication: Multiple sclerosis
     Dosage: YEAR ONE MONTH ONE THERAPY
     Route: 048
     Dates: start: 20210831
  2. MAVENCLAD [Suspect]
     Active Substance: CLADRIBINE
     Dosage: YEAR ONE MONTH TWO THERAPY
     Route: 048
     Dates: end: 20211002
  3. MAVENCLAD [Suspect]
     Active Substance: CLADRIBINE
     Dosage: YEAR TWO MONTH ONE THERAPY
     Route: 048
     Dates: start: 20220824
  4. MAVENCLAD [Suspect]
     Active Substance: CLADRIBINE
     Dosage: YEAR TWO MONTH TWO THERAPY
     Route: 048
  5. COVID-19 VACCINE [Concomitant]
     Indication: COVID-19 immunisation
  6. PROLIA [Concomitant]
     Active Substance: DENOSUMAB
     Indication: Bone loss

REACTIONS (2)
  - Chronic kidney disease [Recovering/Resolving]
  - Osteoporosis [Unknown]

NARRATIVE: CASE EVENT DATE: 20220401
